FAERS Safety Report 6889635-4 (Version None)
Quarter: 2010Q3

REPORT INFORMATION
  Report Type: 
  Country: None (occurrence: None)
  Receive Date: 20100730
  Receipt Date: 20080406
  Transmission Date: 20110219
  Serious: No
  Sender: FDA-Public Use
  Company Number: US-PFIZER INC-2008031265

PATIENT
  Age: 46 Year
  Sex: Male
  Weight: 118.84 kg

DRUGS (4)
  1. LIPITOR [Suspect]
     Indication: BLOOD CHOLESTEROL INCREASED
     Dates: start: 20070101
  2. VALIUM [Suspect]
     Indication: PAIN
  3. LORTAB [Suspect]
     Indication: PAIN
  4. OXYCONTIN [Suspect]
     Indication: PAIN

REACTIONS (3)
  - BACK PAIN [None]
  - BLOOD CHOLESTEROL INCREASED [None]
  - LIVER FUNCTION TEST ABNORMAL [None]
